FAERS Safety Report 11452859 (Version 1)
Quarter: 2015Q3

REPORT INFORMATION
  Report Type: Spontaneous
  Country: FR (occurrence: FR)
  Receive Date: 20150903
  Receipt Date: 20150903
  Transmission Date: 20151125
  Serious: Yes (Hospitalization)
  Sender: FDA-Public Use
  Company Number: FR-PFIZER INC-2015287730

PATIENT
  Age: 10 Year
  Sex: Female
  Weight: 29.7 kg

DRUGS (12)
  1. FUROSEMIDE. [Concomitant]
     Active Substance: FUROSEMIDE
  2. ACICLOVIR MYLAN [Interacting]
     Active Substance: ACYCLOVIR
     Dosage: 350 MG, 3X/DAY
     Route: 041
     Dates: start: 201504
  3. TOBRAMYCIN MYLAN [Interacting]
     Active Substance: TOBRAMYCIN
     Dosage: 50 MG, 1X/DAY
     Route: 041
     Dates: start: 20150413, end: 20150511
  4. OMEPRAZOLE. [Concomitant]
     Active Substance: OMEPRAZOLE
  5. VFEND [Suspect]
     Active Substance: VORICONAZOLE
     Dosage: 150 MG, 3X/DAY
     Route: 048
     Dates: start: 20141209
  6. COLIMYCINE [Interacting]
     Active Substance: COLISTIMETHATE SODIUM
     Dosage: 2.5 MILLION IU, 2X/DAY
     Route: 041
     Dates: start: 20150419
  7. IMIPENEM [Concomitant]
     Active Substance: IMIPENEM
  8. AZITHROMYCIN [Concomitant]
     Active Substance: AZITHROMYCIN ANHYDROUS
  9. VANCOMYCIN SANDOZ [Interacting]
     Active Substance: VANCOMYCIN
     Dosage: 1 G, 1X/DAY
     Route: 041
     Dates: start: 20150411, end: 20150511
  10. NEORAL [Interacting]
     Active Substance: CYCLOSPORINE
     Dosage: 70 MG, 3X/DAY
     Route: 048
     Dates: start: 201504
  11. SOLUDACTONE [Concomitant]
     Active Substance: CANRENOATE POTASSIUM
  12. AMLODIPINE [Concomitant]
     Active Substance: AMLODIPINE BESYLATE

REACTIONS (3)
  - Drug interaction [Recovered/Resolved]
  - Acute kidney injury [Recovered/Resolved]
  - Antibiotic level above therapeutic [Recovered/Resolved]

NARRATIVE: CASE EVENT DATE: 20150422
